FAERS Safety Report 8058368-3 (Version None)
Quarter: 2012Q1

REPORT INFORMATION
  Report Type: 
  Country: None (occurrence: None)
  Receive Date: 20120120
  Receipt Date: 20120110
  Transmission Date: 20120608
  Serious: Yes (Hospitalization)
  Sender: FDA-Public Use
  Company Number: US-BAYER-2011-060301

PATIENT
  Age: 21 Year
  Sex: Female
  Weight: 87.075 kg

DRUGS (4)
  1. YASMIN [Suspect]
     Indication: CONTRACEPTION
     Dosage: UNK
     Route: 048
     Dates: start: 20051004, end: 20051212
  2. CEPHALEXIN [Concomitant]
     Dosage: UNK
     Dates: start: 20060501, end: 20060701
  3. YAZ [Suspect]
     Indication: CONTRACEPTION
     Dosage: UNK
     Route: 048
     Dates: start: 20060813, end: 20060819
  4. SULINDAC [Concomitant]
     Dosage: 150 MG, UNK

REACTIONS (5)
  - INJURY [None]
  - PAIN [None]
  - DEEP VEIN THROMBOSIS [None]
  - ANXIETY [None]
  - EMOTIONAL DISTRESS [None]
